FAERS Safety Report 24142433 (Version 1)
Quarter: 2024Q3

REPORT INFORMATION
  Report Type: Report from Study
  Country: GB (occurrence: GB)
  Receive Date: 20240726
  Receipt Date: 20240726
  Transmission Date: 20241016
  Serious: Yes (Hospitalization)
  Sender: SANDOZ
  Company Number: GB-SANDOZ-SDZ2023GB041664

PATIENT
  Sex: Female

DRUGS (1)
  1. HYRIMOZ [Suspect]
     Active Substance: ADALIMUMAB-ADAZ
     Indication: Rheumatoid arthritis
     Dosage: 40 MG, EOW
     Route: 058

REACTIONS (3)
  - Surgery [Unknown]
  - Malaise [Unknown]
  - Headache [Unknown]
